FAERS Safety Report 8539591-8 (Version None)
Quarter: 2012Q3

REPORT INFORMATION
  Report Type: 
  Country: None (occurrence: None)
  Receive Date: 20120726
  Receipt Date: 20120713
  Transmission Date: 20120928
  Serious: Yes (Hospitalization)
  Sender: FDA-Public Use
  Company Number: BE-ELI_LILLY_AND_COMPANY-BE201204007801

PATIENT
  Age: 60 Year
  Sex: Female
  Weight: 60 kg

DRUGS (9)
  1. LAMOTRIGINE [Concomitant]
     Indication: TEMPERATURE REGULATION DISORDER
     Dosage: 100 MG, BID
     Route: 048
     Dates: start: 20120310
  2. CYMBALTA [Suspect]
     Indication: MAJOR DEPRESSION
     Dosage: 60 MG, BID
     Route: 048
     Dates: start: 20120310, end: 20120419
  3. CYMBALTA [Suspect]
     Dosage: 60 MG, QD
     Dates: end: 20120419
  4. ELTHYRONE [Concomitant]
     Dosage: 100 UG DAILY IN THE EVENING
  5. SEROQUEL XR [Concomitant]
     Dosage: 300 MG BID AT DINNER
  6. DEPAKENE [Concomitant]
     Dosage: 300 MG BID
  7. ELTHYRONE [Concomitant]
     Indication: HYPOTHYROIDISM
     Dosage: 50 UG, DAILY IN MORNING
  8. SEROQUEL [Concomitant]
     Dosage: 200 MG DAILY IN EVENING
  9. LORAZEPAM [Concomitant]
     Dosage: 2.5 MG QID

REACTIONS (2)
  - PYREXIA [None]
  - BIPOLAR I DISORDER [None]
